FAERS Safety Report 10076757 (Version 3)
Quarter: 2014Q2

REPORT INFORMATION
  Report Type: Spontaneous
  Country: JP (occurrence: JP)
  Receive Date: 20140414
  Receipt Date: 20140509
  Transmission Date: 20141212
  Serious: Yes (Death)
  Sender: FDA-Public Use
  Company Number: JP-BRISTOL-MYERS SQUIBB COMPANY-20621173

PATIENT
  Age: 58 Year
  Sex: Male

DRUGS (4)
  1. ABILIFY [Suspect]
     Indication: SCHIZOPHRENIA
     Dosage: 30 MG FROM 02OCT2013 TO 16FEB2014?24 MG FROM 17FEB2014 TO 21FEB2014
     Route: 048
     Dates: start: 20130819, end: 20140221
  2. BENZALIN [Suspect]
     Indication: PRODUCT USED FOR UNKNOWN INDICATION
     Route: 048
     Dates: start: 20130826, end: 20140222
  3. AMOBAN [Suspect]
     Indication: PRODUCT USED FOR UNKNOWN INDICATION
     Dosage: TABS
     Route: 048
     Dates: start: 20130902, end: 20140221
  4. LEVOTOMIN [Concomitant]
     Dates: start: 20131016, end: 20131216

REACTIONS (2)
  - Hepatic function abnormal [Fatal]
  - Hepatic failure [Fatal]
